FAERS Safety Report 13905292 (Version 2)
Quarter: 2017Q3

REPORT INFORMATION
  Report Type: Report from Study
  Country: TH (occurrence: TH)
  Receive Date: 20170825
  Receipt Date: 20170918
  Transmission Date: 20171127
  Serious: Yes (Other)
  Sender: FDA-Public Use
  Company Number: PHHY2017TH115423

PATIENT
  Age: 31 Year
  Sex: Male

DRUGS (5)
  1. PROPANOLOL [Concomitant]
     Active Substance: PROPRANOLOL HYDROCHLORIDE
     Indication: TREMOR
     Dosage: 1 DF, BID
     Route: 065
     Dates: start: 20131022
  2. TOPAMAX [Concomitant]
     Active Substance: TOPIRAMATE
     Dosage: 1 DF, BID
     Route: 065
     Dates: start: 20140923
  3. GILENYA [Suspect]
     Active Substance: FINGOLIMOD HYDROCHLORIDE
     Indication: MULTIPLE SCLEROSIS
     Dosage: UNK UNK, QD
     Route: 048
     Dates: start: 20130814, end: 20140717
  4. TOPAMAX [Concomitant]
     Active Substance: TOPIRAMATE
     Indication: TREMOR
     Dosage: 1 DF, QD
     Route: 065
     Dates: start: 20131022, end: 20140922
  5. GILENYA [Suspect]
     Active Substance: FINGOLIMOD HYDROCHLORIDE
     Dosage: UNK UNK, QD
     Route: 048
     Dates: start: 20141024, end: 20160608

REACTIONS (2)
  - Diabetes insipidus [Not Recovered/Not Resolved]
  - Central nervous system lesion [Unknown]

NARRATIVE: CASE EVENT DATE: 20160803
